FAERS Safety Report 24923743 (Version 2)
Quarter: 2025Q1

REPORT INFORMATION
  Report Type: Spontaneous
  Country: JP (occurrence: JP)
  Receive Date: 20250204
  Receipt Date: 20250327
  Transmission Date: 20250409
  Serious: Yes (Other)
  Sender: ASTELLAS
  Company Number: JP-ASTELLAS-2025-AER-004871

PATIENT
  Age: 59 Year
  Sex: Male

DRUGS (3)
  1. PROGRAF [Suspect]
     Active Substance: TACROLIMUS
     Indication: Renal transplant
     Route: 065
     Dates: start: 1998
  2. AZATHIOPRINE [Concomitant]
     Active Substance: AZATHIOPRINE
     Indication: Renal transplant
     Route: 065
     Dates: start: 1998
  3. METHYLPREDNISOLONE [Concomitant]
     Active Substance: METHYLPREDNISOLONE
     Indication: Renal transplant
     Route: 065
     Dates: start: 1998

REACTIONS (2)
  - Transplant rejection [Recovering/Resolving]
  - Lumbar spinal stenosis [Recovering/Resolving]

NARRATIVE: CASE EVENT DATE: 19980101
